FAERS Safety Report 4418208-8 (Version None)
Quarter: 2004Q3

REPORT INFORMATION
  Report Type: 
  Country: None (occurrence: None)
  Receive Date: 20040805
  Receipt Date: 20040805
  Transmission Date: 20050211
  Serious: Yes (Hospitalization)
  Sender: FDA-Public Use
  Company Number: None

PATIENT
  Age: 72 Year
  Sex: Female
  Weight: 86.637 kg

DRUGS (4)
  1. RITUXAN [Suspect]
     Indication: NON-HODGKIN'S LYMPHOMA
     Dosage: 758 MG IV
     Route: 042
     Dates: start: 20040720
  2. FLUDARA [Suspect]
     Indication: NON-HODGKIN'S LYMPHOMA
     Dosage: 50 MG IV
     Route: 042
     Dates: start: 20040721, end: 20040723
  3. NOVANTRONE [Suspect]
     Indication: NON-HODGKIN'S LYMPHOMA
     Dosage: 20 MG IV
     Route: 042
     Dates: start: 20040721, end: 20040723
  4. DEXAMETHASONE [Suspect]
     Indication: NON-HODGKIN'S LYMPHOMA
     Dosage: 20 MG IV
     Route: 042
     Dates: start: 20040721, end: 20040723

REACTIONS (3)
  - BODY TEMPERATURE INCREASED [None]
  - CATHETER SITE ERYTHEMA [None]
  - FEELING ABNORMAL [None]
